FAERS Safety Report 6816485-7 (Version None)
Quarter: 2010Q3

REPORT INFORMATION
  Report Type: 
  Country: None (occurrence: None)
  Receive Date: 20100705
  Receipt Date: 20100623
  Transmission Date: 20110219
  Serious: Yes (Hospitalization, Other)
  Sender: FDA-Public Use
  Company Number: PHHY2010DE42048

PATIENT

DRUGS (9)
  1. ALISKIREN ALI+ [Suspect]
     Indication: HYPERTENSION
     Dosage: UNK
     Route: 048
     Dates: start: 20081211, end: 20090905
  2. ORAL ANTIDIABETICS [Concomitant]
     Indication: DIABETES MELLITUS
  3. ACE INHIBITOR [Concomitant]
     Dosage: UNK
  4. CALCIUM CHANNEL BLOCKERS [Concomitant]
     Dosage: UNK
  5. DIURETICS [Concomitant]
     Dosage: UNK
  6. VASODILATORS USED IN CARDIAC DISEASES [Concomitant]
     Dosage: UNK
  7. ANTICOAGULANTS [Concomitant]
     Dosage: UNK
  8. ANTIADRENERGIC AGENTS, CENTRALLY ACTING [Concomitant]
     Dosage: UNK
     Dates: start: 20091011
  9. STATIN [Concomitant]
     Dosage: UNK

REACTIONS (2)
  - CARDIAC PACEMAKER INSERTION [None]
  - HYPERTENSION [None]
